FAERS Safety Report 21038720 (Version 1)
Quarter: 2022Q3

REPORT INFORMATION
  Report Type: Spontaneous
  Country: JP (occurrence: JP)
  Receive Date: 20220704
  Receipt Date: 20220704
  Transmission Date: 20221027
  Serious: Yes (Other)
  Sender: FDA-Public Use
  Company Number: JP-CHEPLA-2022005652

PATIENT
  Age: 42 Year
  Sex: Female

DRUGS (7)
  1. GANCICLOVIR [Suspect]
     Active Substance: GANCICLOVIR
     Indication: Cytomegalovirus infection
  2. FOSCARNET [Suspect]
     Active Substance: FOSCARNET
     Indication: Cytomegalovirus infection
  3. RITUXIMAB [Concomitant]
     Active Substance: RITUXIMAB
  4. FLUDARABINE [Concomitant]
     Active Substance: FLUDARABINE PHOSPHATE
     Indication: Myelodysplastic syndrome
     Dosage: 25 MG/M2 I.V. ON DAYS -7 TO -2
  5. BUSULFAN [Concomitant]
     Active Substance: BUSULFAN
     Indication: Myelodysplastic syndrome
     Dosage: 3.2 MG/KG I.V. ON DAYS -3 AND -2
  6. CYCLOSPORINE [Concomitant]
     Active Substance: CYCLOSPORINE
     Indication: Graft versus host disease
  7. METHOTREXATE [Concomitant]
     Active Substance: METHOTREXATE
     Indication: Graft versus host disease

REACTIONS (7)
  - Pancytopenia [Recovering/Resolving]
  - Neutropenia [Recovering/Resolving]
  - Aplasia [Recovering/Resolving]
  - Melaena [Recovering/Resolving]
  - Shock [Recovering/Resolving]
  - Oedema mucosal [Recovering/Resolving]
  - Post transplant lymphoproliferative disorder [Recovering/Resolving]
